FAERS Safety Report 7285121-0 (Version None)
Quarter: 2011Q1

REPORT INFORMATION
  Report Type: 
  Country: None (occurrence: None)
  Receive Date: 20110210
  Receipt Date: 20110131
  Transmission Date: 20110831
  Serious: Yes (Other)
  Sender: FDA-Public Use
  Company Number: PHHY2011IT08283

PATIENT
  Age: 74 Year
  Sex: Female

DRUGS (3)
  1. GOLD [Concomitant]
  2. METHOTREXATE [Concomitant]
  3. CYCLOSPORINE [Suspect]
     Indication: RHEUMATOID ARTHRITIS

REACTIONS (8)
  - DYSPHAGIA [None]
  - WEIGHT DECREASED [None]
  - AMYOTROPHIC LATERAL SCLEROSIS [None]
  - MOTOR NEURONE DISEASE [None]
  - ASTHENIA [None]
  - MUSCLE CONTRACTIONS INVOLUNTARY [None]
  - CRANIAL NERVE PARALYSIS [None]
  - DYSPHONIA [None]
